FAERS Safety Report 6714902-4 (Version None)
Quarter: 2010Q2

REPORT INFORMATION
  Report Type: 
  Country: None (occurrence: None)
  Receive Date: 20100506
  Receipt Date: 20100506
  Transmission Date: 20101027
  Serious: No
  Sender: FDA-Public Use
  Company Number: None

PATIENT
  Age: 7 Year
  Sex: Male
  Weight: 22.6799 kg

DRUGS (4)
  1. CHILDREN'S ZYRTEC ALLERGY [Suspect]
     Indication: EOSINOPHILIC OESOPHAGITIS
     Dosage: 2 TSP -10 ML- DAILY PO
     Route: 048
     Dates: start: 20100101, end: 20100301
  2. CHILDREN'S ZYRTEC ALLERGY [Suspect]
     Indication: HYPERSENSITIVITY
     Dosage: 2 TSP -10 ML- DAILY PO
     Route: 048
     Dates: start: 20100101, end: 20100301
  3. CHILDREN'S ZYRTEC ALLERGY [Suspect]
     Indication: URTICARIA
     Dosage: 2 TSP -10 ML- DAILY PO
     Route: 048
     Dates: start: 20100101, end: 20100301
  4. CHILDRENS ZYRTEC PERFECT MEASURE [Suspect]
     Dates: start: 20100101, end: 20100301

REACTIONS (4)
  - ABDOMINAL DISCOMFORT [None]
  - DYSGEUSIA [None]
  - PRODUCT QUALITY ISSUE [None]
  - VOMITING [None]
